FAERS Safety Report 8186485 (Version 2)
Quarter: 2012Q4

REPORT INFORMATION
  Report Type: 
  Country: US (occurrence: US)
  Receive Date: 20111018
  Receipt Date: 20121227
  Transmission Date: 20130627
  Serious: No
  Sender: FDA-Public Use
  Company Number: US-ASTRAZENECA-2010SE47899

PATIENT
  Age: 48 Year
  Sex: Female
  Weight: 49.9 kg

DRUGS (4)
  1. SYMBICORT [Suspect]
     Indication: ASTHMA
     Dosage: 320 MCG TWO TIMES A DAY
     Route: 055
  2. NEXIUM [Suspect]
     Route: 048
  3. ALPRAZOLAM [Concomitant]
     Indication: ANXIETY
  4. BACK INJECTIONS [Concomitant]

REACTIONS (7)
  - Gastrooesophageal reflux disease [Unknown]
  - Adverse event [Unknown]
  - Palpitations [Recovered/Resolved]
  - Anxiety [Recovered/Resolved]
  - Intentional drug misuse [Unknown]
  - Drug dose omission [Unknown]
  - Drug effect incomplete [Unknown]
